FAERS Safety Report 4569220-X (Version None)
Quarter: 2005Q1

REPORT INFORMATION
  Report Type: 
  Country: None (occurrence: None)
  Receive Date: 20050203
  Receipt Date: 20050125
  Transmission Date: 20050727
  Serious: Yes (Hospitalization)
  Sender: FDA-Public Use
  Company Number: PL-SANOFI-SYNTHELABO-D01200500650

PATIENT
  Sex: Male
  Weight: 92 kg

DRUGS (4)
  1. LEUCOVORIN CALCIUM [Suspect]
     Dosage: 200 MG/M2 AS 2 HOURS INFUSION ON D1-D2 Q2W
     Route: 042
     Dates: start: 20050110, end: 20050111
  2. FLUOROURACIL [Suspect]
     Dosage: 400 MG/M2 AS IV BOLUS THEN 600 MG/M2 AS 22 HOURS CONTINUOUS INFUSION D1-D2 Q2W
     Route: 042
     Dates: start: 20050110, end: 20050112
  3. OXALIPLATIN [Suspect]
     Route: 042
     Dates: start: 20050110, end: 20050110
  4. SR57746 OR PLACEBO [Suspect]
     Route: 048
     Dates: start: 20040505, end: 20050124

REACTIONS (1)
  - ATRIAL FIBRILLATION [None]
